FAERS Safety Report 19054297 (Version 1)
Quarter: 2021Q1

REPORT INFORMATION
  Report Type: Spontaneous
  Country: US (occurrence: US)
  Receive Date: 20210325
  Receipt Date: 20210325
  Transmission Date: 20210420
  Serious: Yes (Death, Other)
  Sender: FDA-Public Use
  Company Number: US-SUN PHARMACEUTICAL INDUSTRIES LTD-2021R1-287081

PATIENT

DRUGS (5)
  1. VINCRISTINE [Suspect]
     Active Substance: VINCRISTINE
     Indication: IMMUNOCHEMOTHERAPY
     Dosage: 1 MILLIGRAM, UNK
     Route: 065
  2. BRENTUXIMAB VEDOTIN [Suspect]
     Active Substance: BRENTUXIMAB VEDOTIN
     Indication: IMMUNOCHEMOTHERAPY
     Dosage: 1.8 MILLIGRAM/KILOGRAM, UNK
     Route: 065
  3. PREDNISONE. [Suspect]
     Active Substance: PREDNISONE
     Indication: IMMUNOCHEMOTHERAPY
     Dosage: 40 MILLIGRAM/SQ. METER, UNK
     Route: 065
  4. CYCLOPHOSPHAMIDE. [Suspect]
     Active Substance: CYCLOPHOSPHAMIDE
     Indication: IMMUNOCHEMOTHERAPY
     Dosage: 400 MILLIGRAM/SQ. METER, UNK
     Route: 065
  5. DOXORUBICIN [Suspect]
     Active Substance: DOXORUBICIN
     Indication: IMMUNOCHEMOTHERAPY
     Dosage: 25 MILLIGRAM/SQ. METER
     Route: 065

REACTIONS (2)
  - Disease progression [Fatal]
  - Intestinal obstruction [Fatal]
